FAERS Safety Report 15933025 (Version 2)
Quarter: 2019Q1

REPORT INFORMATION
  Report Type: Spontaneous
  Country: US (occurrence: US)
  Receive Date: 20190207
  Receipt Date: 20190207
  Transmission Date: 20190417
  Serious: No
  Sender: FDA-Public Use
  Company Number: US-KYOWAKIRIN-2018BKK009156

PATIENT

DRUGS (6)
  1. CRYSVITA [Suspect]
     Active Substance: BUROSUMAB-TWZA
     Indication: PRODUCT USED FOR UNKNOWN INDICATION
     Dosage: 70 MG (3 INJECTIONS), EVERY FOUR WEEKS
     Route: 058
     Dates: start: 20180806
  2. VITAMIN D3 [Suspect]
     Active Substance: CHOLECALCIFEROL
     Indication: PRODUCT USED FOR UNKNOWN INDICATION
     Dosage: UNKNOWN
     Route: 065
  3. SEROQUEL [Concomitant]
     Active Substance: QUETIAPINE FUMARATE
     Indication: PRODUCT USED FOR UNKNOWN INDICATION
     Dosage: UNKNOWN
     Route: 065
  4. CRYSVITA [Suspect]
     Active Substance: BUROSUMAB-TWZA
     Dosage: 70 MG (3 INJECTIONS), EVERY FOUR WEEKS
     Route: 058
     Dates: start: 20180806
  5. CRYSVITA [Suspect]
     Active Substance: BUROSUMAB-TWZA
     Dosage: 70 MG (3 INJECTIONS), EVERY FOUR WEEKS
     Route: 058
     Dates: start: 20180806
  6. CRYSVITA [Suspect]
     Active Substance: BUROSUMAB-TWZA
     Indication: PRODUCT USED FOR UNKNOWN INDICATION
     Dosage: 70 MG (3 INJECTIONS), EVERY FOUR WEEKS
     Route: 058
     Dates: start: 20180806

REACTIONS (2)
  - Contraindicated product administered [Unknown]
  - Pharyngitis streptococcal [Not Recovered/Not Resolved]
